FAERS Safety Report 8124659-0 (Version None)
Quarter: 2012Q1

REPORT INFORMATION
  Report Type: 
  Country: None (occurrence: None)
  Receive Date: 20120209
  Receipt Date: 20120209
  Transmission Date: 20120608
  Serious: Yes (Life-Threatening)
  Sender: FDA-Public Use
  Company Number: None

PATIENT
  Sex: Male
  Weight: 48.3 kg

DRUGS (2)
  1. ALBUTEROL [Suspect]
     Indication: ASTHMA
     Dosage: 15 MG/HR
     Route: 055
     Dates: start: 20120207, end: 20120207
  2. ALBUTEROL [Suspect]
     Indication: CONDITION AGGRAVATED
     Dosage: 15 MG/HR
     Route: 055
     Dates: start: 20120207, end: 20120207

REACTIONS (1)
  - ELECTROCARDIOGRAM ST SEGMENT DEPRESSION [None]
